FAERS Safety Report 4483722-6 (Version None)
Quarter: 2004Q4

REPORT INFORMATION
  Report Type: 
  Country: None (occurrence: None)
  Receive Date: 20041020
  Receipt Date: 20041007
  Transmission Date: 20050328
  Serious: Yes (Hospitalization, Other)
  Sender: FDA-Public Use
  Company Number: HQWYE104925MAY04

PATIENT
  Age: 65 Year
  Sex: Male
  Weight: 83.6 kg

DRUGS (12)
  1. RAPAMUNE [Suspect]
     Indication: PROPHYLAXIS AGAINST TRANSPLANT REJECTION
     Dosage: SEE IMAGE
     Dates: start: 20040127, end: 20040501
  2. RAPAMUNE [Suspect]
     Indication: PROPHYLAXIS AGAINST TRANSPLANT REJECTION
     Dosage: SEE IMAGE
     Dates: start: 20040501
  3. PREDNISONE [Suspect]
     Dosage: 10 MG 1X PER 1 DAY
     Dates: start: 20040501
  4. SODIUM BICARBONATE IN PLASTIC CONTAINER [Concomitant]
  5. PROTONIX [Concomitant]
  6. CARDIZEM [Concomitant]
  7. GLIPIZIDE [Concomitant]
  8. CLONIDINE [Concomitant]
  9. LASIX [Concomitant]
  10. TOPROL-XL [Concomitant]
  11. BACTRIM [Concomitant]
  12. PROGRAF [Concomitant]

REACTIONS (7)
  - ATRIAL FIBRILLATION [None]
  - HAEMATOCRIT DECREASED [None]
  - PLATELET COUNT DECREASED [None]
  - PLEURAL EFFUSION [None]
  - TRICUSPID VALVE INCOMPETENCE [None]
  - URINARY RETENTION [None]
  - VENTRICULAR HYPERTROPHY [None]
